FAERS Safety Report 9207904 (Version 1)
Quarter: 2013Q1

REPORT INFORMATION
  Report Type: Spontaneous
  Country: US (occurrence: None)
  Receive Date: 20120720
  Receipt Date: 20120720
  Transmission Date: 20140127
  Serious: Yes (Other)
  Sender: FDA-Public Use
  Company Number: 2011P1014671

PATIENT
  Age: 4 Year
  Sex: Male
  Weight: 25.4 kg

DRUGS (2)
  1. AMOXICILLIN [Suspect]
     Indication: SINUSITIS
     Route: 048
     Dates: start: 20111213, end: 20111213
  2. OMNICEF [Suspect]
     Dates: start: 20111214, end: 20111214

REACTIONS (1)
  - Hypersensitivity [None]
